FAERS Safety Report 4859715-3 (Version None)
Quarter: 2005Q4

REPORT INFORMATION
  Report Type: 
  Country: None (occurrence: None)
  Receive Date: 20051215
  Receipt Date: 20051129
  Transmission Date: 20060501
  Serious: Yes (Other)
  Sender: FDA-Public Use
  Company Number: 8013668

PATIENT
  Age: 61 Year
  Sex: Male

DRUGS (3)
  1. KEPPRA [Suspect]
     Indication: PARTIAL SEIZURES
     Dosage: 6 G /D PO
     Route: 048
  2. KEPPRA [Suspect]
     Indication: PARTIAL SEIZURES
     Dosage: 4 G /D PO
     Route: 048
  3. TOPIRAMAT [Concomitant]

REACTIONS (3)
  - CARDIAC FAILURE [None]
  - ERECTILE DYSFUNCTION [None]
  - OEDEMA PERIPHERAL [None]
